FAERS Safety Report 19067618 (Version 1)
Quarter: 2021Q1

REPORT INFORMATION
  Report Type: Spontaneous
  Country: US (occurrence: US)
  Receive Date: 20210329
  Receipt Date: 20210329
  Transmission Date: 20210420
  Serious: Yes (Hospitalization, Other)
  Sender: FDA-Public Use
  Company Number: US-009507513-2103USA007291

PATIENT
  Age: 72 Year
  Sex: Female

DRUGS (2)
  1. KEYTRUDA [Suspect]
     Active Substance: PEMBROLIZUMAB
     Indication: METASTATIC UTERINE CANCER
     Dosage: 200 MG IV EVERY 21 DAYS
     Route: 042
  2. LENVATINIB MESYLATE [Concomitant]
     Active Substance: LENVATINIB MESYLATE
     Indication: METASTATIC UTERINE CANCER
     Dosage: 20 MG TABLET/DAY
     Route: 048

REACTIONS (1)
  - Guillain-Barre syndrome [Recovering/Resolving]
